FAERS Safety Report 9584193 (Version 2)
Quarter: 2013Q4

REPORT INFORMATION
  Report Type: Spontaneous
  Country: US (occurrence: US)
  Receive Date: 20131002
  Receipt Date: 20131002
  Transmission Date: 20140711
  Serious: No
  Sender: FDA-Public Use
  Company Number: US-AMGEN-USASP2013051341

PATIENT
  Age: 32 Year
  Sex: Female

DRUGS (8)
  1. ENBREL [Suspect]
     Indication: RHEUMATOID ARTHRITIS
     Dosage: 50 MG, QWK
     Route: 058
     Dates: start: 20130626, end: 20130724
  2. ENBREL [Suspect]
     Dosage: UNK
  3. PREDNISONE [Concomitant]
     Dosage: 50 MG, UNK
  4. LOSARTAN POTASSIUM [Concomitant]
     Dosage: 50 MG, UNK
  5. ARAVA [Concomitant]
     Dosage: 10 MG, UNK
  6. PRILOSEC                           /00661201/ [Concomitant]
     Dosage: 20 MG, UNK
  7. LOESTRIN FE [Concomitant]
     Dosage: UNK
  8. ZYRTEC [Concomitant]
     Dosage: 10 MG, ODT

REACTIONS (2)
  - Adverse reaction [Unknown]
  - Injection site erythema [Unknown]
